FAERS Safety Report 17839602 (Version 1)
Quarter: 2020Q2

REPORT INFORMATION
  Report Type: Spontaneous
  Country: US (occurrence: US)
  Receive Date: 20200529
  Receipt Date: 20200529
  Transmission Date: 20200714
  Serious: No
  Sender: FDA-Public Use
  Company Number: None

PATIENT
  Age: 64 Year
  Sex: Female

DRUGS (1)
  1. PREGABALIN(PREGABALIN 150MG CAP, ORAL) [Suspect]
     Active Substance: PREGABALIN
     Indication: PAIN
     Dates: start: 20190806, end: 20190926

REACTIONS (2)
  - Pruritus [None]
  - Urticaria [None]

NARRATIVE: CASE EVENT DATE: 20191007
